FAERS Safety Report 9643221 (Version 1)
Quarter: 2013Q4

REPORT INFORMATION
  Report Type: Spontaneous
  Country: FR (occurrence: FR)
  Receive Date: 20131024
  Receipt Date: 20131024
  Transmission Date: 20140711
  Serious: Yes (Death, Life-Threatening, Hospitalization, Other)
  Sender: FDA-Public Use
  Company Number: FR-MERCK-1310FRA009253

PATIENT
  Age: 57 Year
  Sex: Female

DRUGS (2)
  1. VIRAFERONPEG [Suspect]
     Dosage: 120 MICROGRAM, CYCLICAL
     Route: 058
     Dates: start: 200803, end: 200903
  2. REBETOL [Suspect]
     Dosage: 200 MG, 5 TIMES PER DAY
     Route: 048
     Dates: start: 200803, end: 200903

REACTIONS (1)
  - Lung cancer metastatic [Fatal]
